FAERS Safety Report 5681212-6 (Version None)
Quarter: 2008Q1

REPORT INFORMATION
  Report Type: 
  Country: None (occurrence: None)
  Receive Date: 20080326
  Receipt Date: 20070103
  Transmission Date: 20080703
  Serious: No
  Sender: FDA-Public Use
  Company Number: US-BAYER-US-2007-000115

PATIENT
  Age: 53 Year
  Sex: Female
  Weight: 84 kg

DRUGS (2)
  1. MIRENA [Suspect]
     Indication: UTERINE LEIOMYOMA
     Route: 015
     Dates: start: 20061116, end: 20070103
  2. SYNTHROID [Concomitant]
     Dosage: UNIT DOSE: 1.25 ?G
     Route: 048

REACTIONS (3)
  - HEADACHE [None]
  - NIGHT SWEATS [None]
  - VAGINAL HAEMORRHAGE [None]
